FAERS Safety Report 4587278-9 (Version None)
Quarter: 2005Q1

REPORT INFORMATION
  Report Type: 
  Country: None (occurrence: None)
  Receive Date: 20050215
  Receipt Date: 20050202
  Transmission Date: 20050727
  Serious: Yes (Other)
  Sender: FDA-Public Use
  Company Number: 2004119758

PATIENT
  Age: 47 Year
  Sex: Male

DRUGS (1)
  1. VIAGRA [Suspect]
     Indication: ERECTILE DYSFUNCTION
     Dosage: 100 MG (100 MG, 1 AS NECESSARY), ORAL
     Route: 048
     Dates: start: 20041201

REACTIONS (2)
  - RED BLOOD CELLS URINE POSITIVE [None]
  - URETHRAL HAEMORRHAGE [None]
